FAERS Safety Report 21436928 (Version 4)
Quarter: 2022Q4

REPORT INFORMATION
  Report Type: Report from Study
  Country: US (occurrence: US)
  Receive Date: 20221010
  Receipt Date: 20221108
  Transmission Date: 20230113
  Serious: Yes (Other)
  Sender: FDA-Public Use
  Company Number: US-PFIZER INC-PV202200074339

PATIENT
  Age: 45 Year
  Sex: Female

DRUGS (1)
  1. PAXLOVID [Suspect]
     Active Substance: NIRMATRELVIR\RITONAVIR
     Indication: COVID-19
     Dosage: [NIRMATRELVIR 150MG]/[RITONAVIR 100MG], 2X/DAY, CRUSHED VIA NGT TUBE
     Dates: start: 20220415

REACTIONS (2)
  - Hepatotoxicity [Unknown]
  - Liver function test increased [Recovering/Resolving]
